FAERS Safety Report 4640573-7 (Version None)
Quarter: 2005Q2

REPORT INFORMATION
  Report Type: 
  Country: None (occurrence: None)
  Receive Date: 20050420
  Receipt Date: 20050302
  Transmission Date: 20051028
  Serious: Yes (Hospitalization)
  Sender: FDA-Public Use
  Company Number: US-BRISTOL-MYERS SQUIBB COMPANY-12883187

PATIENT
  Age: 62 Year
  Sex: Male

DRUGS (3)
  1. ERBITUX [Suspect]
     Indication: LUNG CANCER METASTATIC
     Dosage: INTERRUPTED 06-JAN-2005.
     Route: 042
     Dates: start: 20050106, end: 20050106
  2. CARBOPLATIN [Suspect]
     Indication: LUNG CANCER METASTATIC
     Dosage: INTERRUPTED 06-JAN-2005.
     Route: 042
     Dates: start: 20050106, end: 20050106
  3. TAXOTERE [Suspect]
     Indication: LUNG CANCER METASTATIC
     Route: 042
     Dates: start: 20041208, end: 20041208

REACTIONS (3)
  - BACK PAIN [None]
  - PNEUMONIA [None]
  - PRODUCTIVE COUGH [None]
